FAERS Safety Report 23477917 (Version 1)
Quarter: 2024Q1

REPORT INFORMATION
  Report Type: Report from Study
  Country: US (occurrence: US)
  Receive Date: 20240204
  Receipt Date: 20240204
  Transmission Date: 20240410
  Serious: No
  Sender: FDA-Public Use
  Company Number: US-EXELIXIS-CABO-23066931

PATIENT
  Sex: Male

DRUGS (2)
  1. CABOMETYX [Suspect]
     Active Substance: CABOZANTINIB S-MALATE
     Indication: Renal cancer
     Dosage: 60 MG, QD
     Route: 048
     Dates: start: 202307
  2. CABOMETYX [Suspect]
     Active Substance: CABOZANTINIB S-MALATE
     Dosage: 40 MG, QD
     Route: 048

REACTIONS (10)
  - Nasal congestion [Unknown]
  - Adverse drug reaction [Unknown]
  - Blood pressure increased [Unknown]
  - Epistaxis [Unknown]
  - Muscle spasms [Unknown]
  - Dyspnoea [Unknown]
  - Headache [Unknown]
  - Dry mouth [Unknown]
  - Nausea [Unknown]
  - Constipation [Unknown]
